FAERS Safety Report 10523065 (Version 7)
Quarter: 2015Q2

REPORT INFORMATION
  Report Type: Report from Study
  Country: US (occurrence: US)
  Receive Date: 20141016
  Receipt Date: 20150630
  Transmission Date: 20150821
  Serious: Yes (Hospitalization, Other)
  Sender: FDA-Public Use
  Company Number: US-ALEXION PHARMACEUTICALS INC-A201403786

PATIENT

DRUGS (4)
  1. SOLIRIS [Suspect]
     Active Substance: ECULIZUMAB
     Dosage: 900 MG, Q2W
  2. SOLIRIS [Suspect]
     Active Substance: ECULIZUMAB
     Dosage: UNK
  3. SOLIRIS [Suspect]
     Active Substance: ECULIZUMAB
     Indication: PAROXYSMAL NOCTURNAL HAEMOGLOBINURIA
     Dosage: UNK
     Route: 042
     Dates: start: 20140820
  4. SOLIRIS [Suspect]
     Active Substance: ECULIZUMAB
     Dosage: 600 MG, QW
     Route: 042

REACTIONS (10)
  - Off label use [Unknown]
  - Arthralgia [Unknown]
  - Headache [Recovering/Resolving]
  - Central nervous system lesion [Unknown]
  - Hypokinesia [Unknown]
  - Blood glucose decreased [Recovered/Resolved]
  - Feeling abnormal [Recovering/Resolving]
  - Laboratory test abnormal [Recovering/Resolving]
  - Loss of consciousness [Unknown]
  - Dehydration [Unknown]

NARRATIVE: CASE EVENT DATE: 20140820
